FAERS Safety Report 19004318 (Version 3)
Quarter: 2021Q2

REPORT INFORMATION
  Report Type: Report from Study
  Country: US (occurrence: US)
  Receive Date: 20210312
  Receipt Date: 20210408
  Transmission Date: 20210717
  Serious: Yes (Other)
  Sender: FDA-Public Use
  Company Number: US-BAYER-2021-089447

PATIENT
  Age: 60 Year
  Sex: Female

DRUGS (3)
  1. STIVARGA [Suspect]
     Active Substance: REGORAFENIB
     Indication: COLON CANCER
     Dosage: 40 MG DAILY 21 DAYS, THEN 7 DAYS OFF
     Route: 048
     Dates: end: 20210326
  2. STIVARGA [Suspect]
     Active Substance: REGORAFENIB
     Indication: COLON CANCER
     Dosage: DAILY DOSE 80 MG ON DAYS 1?21, 7 DAYS OFF REPEAT CYCLE
     Dates: start: 20210224
  3. STIVARGA [Suspect]
     Active Substance: REGORAFENIB
     Indication: COLON CANCER
     Dosage: 120 MG DAILY ON DAYS 1?21  7 DAYS OFF
     Dates: start: 20210223, end: 20210223

REACTIONS (27)
  - Muscle spasms [Recovering/Resolving]
  - Arthralgia [Not Recovered/Not Resolved]
  - Temperature intolerance [Unknown]
  - Off label use [None]
  - Illness [Unknown]
  - Neuropathy peripheral [Unknown]
  - Hypoaesthesia [Unknown]
  - Headache [Unknown]
  - Fungal infection [Unknown]
  - Gait disturbance [Unknown]
  - Muscular weakness [Unknown]
  - Diplopia [Unknown]
  - Photophobia [Unknown]
  - Dysstasia [Unknown]
  - Balance disorder [Unknown]
  - Urinary tract infection [Unknown]
  - Heart rate increased [Unknown]
  - Dry mouth [Unknown]
  - Bedridden [Unknown]
  - Oropharyngeal pain [Unknown]
  - Oral candidiasis [Unknown]
  - Wheezing [Unknown]
  - Fluid intake reduced [Unknown]
  - Pain in extremity [Not Recovered/Not Resolved]
  - Musculoskeletal stiffness [Unknown]
  - Migraine without aura [Unknown]
  - Nausea [Unknown]

NARRATIVE: CASE EVENT DATE: 20210223
